FAERS Safety Report 7420773-3 (Version None)
Quarter: 2011Q2

REPORT INFORMATION
  Report Type: 
  Country: None (occurrence: None)
  Receive Date: 20110418
  Receipt Date: 20110407
  Transmission Date: 20111010
  Serious: Yes (Hospitalization, Other)
  Sender: FDA-Public Use
  Company Number: US-ROCHE-701269

PATIENT
  Sex: Male
  Weight: 49 kg

DRUGS (1)
  1. ACCUTANE [Suspect]
     Indication: ACNE
     Route: 065
     Dates: start: 19820901, end: 19831001

REACTIONS (14)
  - NEPHROLITHIASIS [None]
  - RECTAL FISSURE [None]
  - AUTOIMMUNE DISORDER [None]
  - DEEP VEIN THROMBOSIS [None]
  - INTESTINAL FISTULA [None]
  - COLONIC POLYP [None]
  - INTESTINAL HAEMORRHAGE [None]
  - ANAL STENOSIS [None]
  - ANAL FISTULA [None]
  - CROHN'S DISEASE [None]
  - HAEMORRHOIDS [None]
  - INFLAMMATORY BOWEL DISEASE [None]
  - DEPRESSION [None]
  - SUICIDAL IDEATION [None]
